FAERS Safety Report 13602638 (Version 1)
Quarter: 2017Q2

REPORT INFORMATION
  Report Type: Spontaneous
  Country: HR (occurrence: HR)
  Receive Date: 20170601
  Receipt Date: 20170601
  Transmission Date: 20170830
  Serious: Yes (Life-Threatening, Other)
  Sender: FDA-Public Use
  Company Number: PHHY2017HR077374

PATIENT
  Age: 45 Year
  Sex: Female

DRUGS (6)
  1. SULPIRIDE [Suspect]
     Active Substance: SULPIRIDE
     Indication: PRODUCT USED FOR UNKNOWN INDICATION
     Dosage: 50 MG, 2 TABLETS
     Route: 048
     Dates: start: 20160115, end: 20160115
  2. ASKA [Suspect]
     Active Substance: ASPIRIN
     Indication: PRODUCT USED FOR UNKNOWN INDICATION
     Dosage: 3 TABLETS
     Route: 048
     Dates: start: 20160115, end: 20160115
  3. TEGRETOL [Suspect]
     Active Substance: CARBAMAZEPINE
     Indication: PRODUCT USED FOR UNKNOWN INDICATION
     Dosage: 2 DF, UNK
     Route: 048
     Dates: start: 20160115, end: 20160115
  4. ZALDIAR [Suspect]
     Active Substance: ACETAMINOPHEN\TRAMADOL HYDROCHLORIDE
     Indication: PRODUCT USED FOR UNKNOWN INDICATION
     Dosage: 1 DF, 3 TABLET
     Route: 048
     Dates: start: 20160115, end: 20160115
  5. AMLOPIN [Suspect]
     Active Substance: AMLODIPINE BESYLATE
     Indication: PRODUCT USED FOR UNKNOWN INDICATION
     Dosage: 10 MG, 11 TABLET
     Route: 048
     Dates: start: 20160115, end: 20160115
  6. HELEX [Suspect]
     Active Substance: ALPRAZOLAM
     Indication: PRODUCT USED FOR UNKNOWN INDICATION
     Dosage: 0.25 MG, 1 TABLET
     Route: 048
     Dates: start: 20160115, end: 20160115

REACTIONS (4)
  - Coma [Unknown]
  - Respiratory failure [Unknown]
  - Overdose [Unknown]
  - Hypotension [Unknown]

NARRATIVE: CASE EVENT DATE: 20160115
